FAERS Safety Report 13693938 (Version 2)
Quarter: 2017Q3

REPORT INFORMATION
  Report Type: Spontaneous
  Country: US (occurrence: US)
  Receive Date: 20170627
  Receipt Date: 20170713
  Transmission Date: 20171127
  Serious: Yes (Hospitalization, Other)
  Sender: FDA-Public Use
  Company Number: US-PFIZER INC-2017277549

PATIENT
  Sex: Female

DRUGS (1)
  1. GABAPENTIN. [Suspect]
     Active Substance: GABAPENTIN
     Indication: PAIN
     Dosage: 600 MG, 3 TO 4 TIMES DAILY

REACTIONS (7)
  - Fall [Unknown]
  - Ankle fracture [Unknown]
  - Tongue injury [Unknown]
  - Feeling abnormal [Unknown]
  - Seizure [Not Recovered/Not Resolved]
  - Product use in unapproved indication [Unknown]
  - Nervous system disorder [Unknown]
